FAERS Safety Report 5742982-1 (Version None)
Quarter: 2008Q2

REPORT INFORMATION
  Report Type: 
  Country: None (occurrence: None)
  Receive Date: 20080515
  Receipt Date: 20080515
  Transmission Date: 20081010
  Serious: Yes (Other)
  Sender: FDA-Public Use
  Company Number: None

PATIENT
  Sex: Male
  Weight: 85.7298 kg

DRUGS (2)
  1. RISPERDAL [Suspect]
     Indication: TOURETTE'S DISORDER
     Dosage: 0.5 MG BID PO
     Route: 048
     Dates: start: 20080220, end: 20080418
  2. ABILIFY [Suspect]
     Dosage: 1/2 TABLET BID PO
     Route: 048

REACTIONS (2)
  - AKATHISIA [None]
  - RESTLESSNESS [None]
